FAERS Safety Report 15172600 (Version 1)
Quarter: 2018Q3

REPORT INFORMATION
  Report Type: Spontaneous
  Country: US (occurrence: US)
  Receive Date: 20180720
  Receipt Date: 20180720
  Transmission Date: 20181010
  Serious: No
  Sender: FDA-Public Use
  Company Number: US-TEVA-2018-US-928475

PATIENT

DRUGS (1)
  1. ETHINYLESTRADIOL [Suspect]
     Active Substance: ETHINYL ESTRADIOL
     Dosage: FORM STRENGTH : 0.250 MG/0.035 MG
     Route: 065

REACTIONS (3)
  - Drug ineffective [Unknown]
  - Product packaging confusion [Unknown]
  - Menstrual disorder [Unknown]
